FAERS Safety Report 6704102-6 (Version None)
Quarter: 2010Q2

REPORT INFORMATION
  Report Type: 
  Country: None (occurrence: None)
  Receive Date: 20100430
  Receipt Date: 20100324
  Transmission Date: 20101027
  Serious: Yes (Hospitalization)
  Sender: FDA-Public Use
  Company Number: DE-PFIZER INC-2009291468

PATIENT
  Age: 79 Year
  Sex: Male

DRUGS (5)
  1. SILDENAFIL CITRATE [Suspect]
     Indication: PULMONARY ARTERIAL HYPERTENSION
     Dosage: 20 MG, 3X/DAY
     Route: 048
     Dates: start: 20060501, end: 20090301
  2. ALLOPURINOL [Concomitant]
     Dosage: 150 MG, 1X/DAY
  3. MARCUMAR [Concomitant]
     Indication: ATRIAL FIBRILLATION
     Dosage: UNK
     Route: 048
     Dates: end: 20081101
  4. RAMIPRIL [Concomitant]
     Dosage: 2.5 MG, 1X/DAY
  5. TORASEMIDE [Concomitant]
     Dosage: 1 DF, 1X/DAY

REACTIONS (1)
  - PLATELET FUNCTION TEST ABNORMAL [None]
